FAERS Safety Report 8438008-1 (Version None)
Quarter: 2012Q2

REPORT INFORMATION
  Report Type: 
  Country: None (occurrence: None)
  Receive Date: 20120614
  Receipt Date: 20120608
  Transmission Date: 20120825
  Serious: No
  Sender: FDA-Public Use
  Company Number: US-AMGEN-USASP2012028581

PATIENT
  Age: 79 Year
  Sex: Female
  Weight: 68.027 kg

DRUGS (2)
  1. PROLIA [Suspect]
     Indication: OSTEOPOROSIS POSTMENOPAUSAL
     Dosage: 60 MG, Q6MO
     Dates: start: 20120307
  2. PRILOSEC [Concomitant]
     Indication: ABDOMINAL DISCOMFORT

REACTIONS (8)
  - MYALGIA [None]
  - BONE PAIN [None]
  - SPINAL DEFORMITY [None]
  - BACK PAIN [None]
  - SPINAL PAIN [None]
  - FEELING ABNORMAL [None]
  - ARTHRALGIA [None]
  - INSOMNIA [None]
